FAERS Safety Report 8601586-3 (Version None)
Quarter: 2012Q3

REPORT INFORMATION
  Report Type: 
  Country: None (occurrence: None)
  Receive Date: 20120817
  Receipt Date: 20111208
  Transmission Date: 20120928
  Serious: No
  Sender: FDA-Public Use
  Company Number: US-BRISTOL-MYERS SQUIBB COMPANY-16280612

PATIENT
  Age: 61 Year
  Sex: Female

DRUGS (2)
  1. OXYCONTIN [Concomitant]
  2. SPRYCEL [Suspect]

REACTIONS (3)
  - MUSCLE SPASMS [None]
  - HEADACHE [None]
  - NAUSEA [None]
